FAERS Safety Report 4527530-6 (Version None)
Quarter: 2004Q4

REPORT INFORMATION
  Report Type: 
  Country: None (occurrence: None)
  Receive Date: 20041130
  Receipt Date: 20040923
  Transmission Date: 20050328
  Serious: No
  Sender: FDA-Public Use
  Company Number: WAES 0409USA02066

PATIENT
  Age: 46 Year
  Sex: Female

DRUGS (4)
  1. ZETIA [Suspect]
     Indication: BLOOD CHOLESTEROL INCREASED
     Dosage: PO
     Route: 048
  2. ALLEGRA [Concomitant]
  3. LEXAPRO [Concomitant]
  4. VITAMINS (UNSPECIFIED) [Concomitant]

REACTIONS (1)
  - OEDEMA PERIPHERAL [None]
